FAERS Safety Report 12753231 (Version 1)
Quarter: 2016Q3

REPORT INFORMATION
  Report Type: Spontaneous
  Country: FR (occurrence: FR)
  Receive Date: 20160916
  Receipt Date: 20160916
  Transmission Date: 20161109
  Serious: Yes (Hospitalization)
  Sender: FDA-Public Use
  Company Number: FR-FLAMINGO-000345

PATIENT
  Age: 84 Year
  Sex: Female

DRUGS (1)
  1. METRONIDAZOLE. [Suspect]
     Active Substance: METRONIDAZOLE
     Indication: DIARRHOEA
     Route: 048

REACTIONS (3)
  - Encephalopathy [Recovering/Resolving]
  - Fall [Unknown]
  - Cerebellar ataxia [Recovering/Resolving]
